FAERS Safety Report 22309382 (Version 1)
Quarter: 2023Q2

REPORT INFORMATION
  Report Type: Spontaneous
  Country: US (occurrence: US)
  Receive Date: 20230511
  Receipt Date: 20230511
  Transmission Date: 20230721
  Serious: Yes (Hospitalization, Other)
  Sender: FDA-Public Use
  Company Number: US-PFIZER INC-PV202300080727

PATIENT
  Age: 66 Year
  Sex: Female

DRUGS (1)
  1. CEFEPIME HYDROCHLORIDE [Suspect]
     Active Substance: CEFEPIME HYDROCHLORIDE
     Indication: Salmonellosis
     Dosage: ON DAY 0 AND DAY 1 POST-HSC INFUSION  (3-DAY COURSE)
     Route: 042

REACTIONS (2)
  - Bacteraemia [Recovering/Resolving]
  - Off label use [Unknown]
